FAERS Safety Report 7765112-3 (Version None)
Quarter: 2011Q3

REPORT INFORMATION
  Report Type: 
  Country: None (occurrence: None)
  Receive Date: 20110921
  Receipt Date: 20110914
  Transmission Date: 20111222
  Serious: Yes (Other)
  Sender: FDA-Public Use
  Company Number: DE-ROCHE-802856

PATIENT
  Sex: Male
  Weight: 115 kg

DRUGS (2)
  1. RIBAVIRIN [Suspect]
     Route: 065
     Dates: start: 20110503, end: 20110719
  2. PEGINTERFERON ALFA-2A [Suspect]
     Route: 058
     Dates: start: 20110303, end: 20110719

REACTIONS (2)
  - ALCOHOL ABUSE [None]
  - ALCOHOLISM [None]
